FAERS Safety Report 24255521 (Version 3)
Quarter: 2025Q3

REPORT INFORMATION
  Report Type: Spontaneous
  Country: US (occurrence: US)
  Receive Date: 20240827
  Receipt Date: 20250820
  Transmission Date: 20251021
  Serious: No
  Sender: SANOFI AVENTIS
  Company Number: US-SA-SAC20240819000850

PATIENT
  Age: 27 Year
  Sex: Female

DRUGS (33)
  1. DUPIXENT [Suspect]
     Active Substance: DUPILUMAB
     Indication: Asthma
     Dosage: 300 MG, QOW
     Route: 058
     Dates: start: 20200612
  2. DUPIXENT [Suspect]
     Active Substance: DUPILUMAB
     Indication: Dermatitis atopic
  3. ADBRY [Concomitant]
     Active Substance: TRALOKINUMAB-LDRM
     Indication: Dermatitis atopic
  4. ALBUTEROL SULFATE [Concomitant]
     Active Substance: ALBUTEROL SULFATE
     Indication: Asthma
  5. CELECOXIB [Concomitant]
     Active Substance: CELECOXIB
  6. CLOBETASOL [Concomitant]
     Active Substance: CLOBETASOL
  7. CLONIDINE [Concomitant]
     Active Substance: CLONIDINE
  8. DIAZEPAM [Concomitant]
     Active Substance: DIAZEPAM
  9. DEVICE [Concomitant]
     Active Substance: DEVICE
  10. GABAPENTIN [Concomitant]
     Active Substance: GABAPENTIN
  11. KETOROLAC [Concomitant]
     Active Substance: KETOROLAC TROMETHAMINE
  12. NAPROXEN [Concomitant]
     Active Substance: NAPROXEN
  13. OMEPRAZOLE [Concomitant]
     Active Substance: OMEPRAZOLE
     Indication: Gastrooesophageal reflux disease
  14. OMEPRAZOLE [Concomitant]
     Active Substance: OMEPRAZOLE
     Indication: Oesophagitis
  15. ONDANSETRON [Concomitant]
     Active Substance: ONDANSETRON
     Indication: Alcohol abuse
  16. OSELTAMIVIR [Concomitant]
     Active Substance: OSELTAMIVIR
  17. PREDNISONE [Concomitant]
     Active Substance: PREDNISONE
     Indication: Dermatitis atopic
  18. PREDNISONE [Concomitant]
     Active Substance: PREDNISONE
     Indication: Asthma
  19. PREDNISONE [Concomitant]
     Active Substance: PREDNISONE
     Indication: Dermatitis atopic
  20. PREDNISONE [Concomitant]
     Active Substance: PREDNISONE
     Indication: Asthma
  21. QUETIAPINE [Concomitant]
     Active Substance: QUETIAPINE
  22. RINVOQ [Concomitant]
     Active Substance: UPADACITINIB
  23. SERTRALINE [Concomitant]
     Active Substance: SERTRALINE HYDROCHLORIDE
  24. TIZANIDINE [Concomitant]
     Active Substance: TIZANIDINE
  25. TRAMADOL [Concomitant]
     Active Substance: TRAMADOL
  26. XOLAIR [Concomitant]
     Active Substance: OMALIZUMAB
     Indication: Asthma
  27. CYCLOBENZAPRINE [Concomitant]
     Active Substance: CYCLOBENZAPRINE
  28. TRIAMCINOLONE [Concomitant]
     Active Substance: TRIAMCINOLONE
  29. METHYLPREDNISOLONE [Concomitant]
     Active Substance: METHYLPREDNISOLONE
  30. LEVETIRACETAM [Concomitant]
     Active Substance: LEVETIRACETAM
  31. METHOCARBAMOL [Concomitant]
     Active Substance: METHOCARBAMOL
  32. MAGNESIUM OXIDE [Concomitant]
     Active Substance: MAGNESIUM OXIDE
  33. GABAPENTIN [Concomitant]
     Active Substance: GABAPENTIN

REACTIONS (8)
  - Sleep disorder [Not Recovered/Not Resolved]
  - Madarosis [Not Recovered/Not Resolved]
  - Discomfort [Not Recovered/Not Resolved]
  - Erythema [Not Recovered/Not Resolved]
  - Asthma [Not Recovered/Not Resolved]
  - Rash [Not Recovered/Not Resolved]
  - Eye irritation [Not Recovered/Not Resolved]
  - Drug ineffective [Unknown]

NARRATIVE: CASE EVENT DATE: 20240801
